FAERS Safety Report 5823778-9 (Version None)
Quarter: 2008Q3

REPORT INFORMATION
  Report Type: 
  Country: None (occurrence: None)
  Receive Date: 20080725
  Receipt Date: 20080718
  Transmission Date: 20090109
  Serious: Yes (Other)
  Sender: FDA-Public Use
  Company Number: US-MERCK-0807USA03932

PATIENT
  Sex: Male

DRUGS (4)
  1. JANUVIA [Suspect]
     Indication: DIABETES MELLITUS
     Route: 048
     Dates: start: 20080401
  2. GLUCOTROL [Concomitant]
     Route: 065
     Dates: start: 20080601
  3. GLUCOPHAGE [Concomitant]
     Route: 065
     Dates: start: 19930101
  4. FORTAMET [Concomitant]
     Route: 065
     Dates: start: 20050101, end: 20080101

REACTIONS (2)
  - CARDIAC DISORDER [None]
  - HYPOGLYCAEMIA [None]
